FAERS Safety Report 19091739 (Version 2)
Quarter: 2021Q2

REPORT INFORMATION
  Report Type: Other
  Country: BR (occurrence: BR)
  Receive Date: 20210405
  Receipt Date: 20210417
  Transmission Date: 20210717
  Serious: Yes (Other)
  Sender: FDA-Public Use
  Company Number: BR-ROCHE-2803599

PATIENT
  Age: 58 Year
  Sex: Female

DRUGS (3)
  1. XOLAIR [Suspect]
     Active Substance: OMALIZUMAB
     Dosage: UNK (LAST APPLICATION)
     Route: 065
     Dates: start: 20210225
  2. XOLAIR [Suspect]
     Active Substance: OMALIZUMAB
     Dosage: UNK (LAST APPLICATION)
     Route: 065
     Dates: start: 20210121
  3. XOLAIR [Suspect]
     Active Substance: OMALIZUMAB
     Indication: CHRONIC SPONTANEOUS URTICARIA
     Dosage: UNK (2 PER APPLICATION)
     Route: 065
     Dates: start: 20191025

REACTIONS (6)
  - Pyrexia [Recovered/Resolved]
  - COVID-19 [Unknown]
  - Fatigue [Recovering/Resolving]
  - Immunosuppression [Unknown]
  - Dyspnoea [Recovering/Resolving]
  - Pain in extremity [Unknown]

NARRATIVE: CASE EVENT DATE: 20210301
